FAERS Safety Report 8721872 (Version 2)
Quarter: 2012Q4

REPORT INFORMATION
  Report Type: 
  Country: VE (occurrence: VE)
  Receive Date: 20120814
  Receipt Date: 20120908
  Transmission Date: 20130627
  Serious: Yes (Hospitalization)
  Sender: FDA-Public Use
  Company Number: PHHY2012VE069637

PATIENT
  Sex: Female

DRUGS (5)
  1. ACLASTA [Suspect]
     Dosage: 5 mg, annually
     Route: 042
     Dates: start: 20080109
  2. ACLASTA [Suspect]
     Dosage: 5 mg, annually
     Route: 042
     Dates: start: 20090109
  3. ACLASTA [Suspect]
     Dosage: 5 mg, annually
     Route: 042
     Dates: start: 20100109
  4. ACLASTA [Suspect]
     Dosage: 5 mg, annually
     Route: 042
     Dates: start: 20110109
  5. ACLASTA [Suspect]
     Dosage: 5 mg, annually
     Route: 042
     Dates: start: 20120108

REACTIONS (2)
  - Device related infection [Recovering/Resolving]
  - Haemoglobin decreased [Recovering/Resolving]
